FAERS Safety Report 18387349 (Version 1)
Quarter: 2020Q4

REPORT INFORMATION
  Report Type: Spontaneous
  Country: CA (occurrence: CA)
  Receive Date: 20201015
  Receipt Date: 20201015
  Transmission Date: 20210114
  Serious: Yes (Other)
  Sender: FDA-Public Use
  Company Number: NVSC2020CA275590

PATIENT
  Age: 54 Year
  Sex: Female

DRUGS (7)
  1. DIPHENHYDRAMINE. [Concomitant]
     Active Substance: DIPHENHYDRAMINE
     Indication: SARCOMA UTERUS
     Dosage: 50 MG, UNK
     Route: 048
  2. DOCETAXEL. [Suspect]
     Active Substance: DOCETAXEL
     Indication: SARCOMA UTERUS
     Dosage: 1.7 ML, UNK
     Route: 042
  3. PROCHLORPERAZINE. [Concomitant]
     Active Substance: PROCHLORPERAZINE
     Indication: SARCOMA UTERUS
     Dosage: 10 MG, UNK
     Route: 048
  4. DIPHENHYDRAMINE. [Concomitant]
     Active Substance: DIPHENHYDRAMINE
     Dosage: 50 MG, UNK
     Route: 042
  5. DEXAMETHASONE. [Concomitant]
     Active Substance: DEXAMETHASONE
     Dosage: 8 MG, UNK
     Route: 042
  6. DEXAMETHASONE. [Concomitant]
     Active Substance: DEXAMETHASONE
     Indication: SARCOMA UTERUS
     Dosage: 8 MG, UNK
     Route: 048
  7. GEMCITABINE. [Suspect]
     Active Substance: GEMCITABINE
     Indication: SARCOMA UTERUS
     Dosage: UNK
     Route: 042

REACTIONS (3)
  - Dermatitis bullous [Recovered/Resolved]
  - Product use in unapproved indication [Unknown]
  - Erythema [Unknown]
